FAERS Safety Report 23779685 (Version 1)
Quarter: 2024Q2

REPORT INFORMATION
  Report Type: Report from Study
  Country: US (occurrence: US)
  Receive Date: 20240424
  Receipt Date: 20240424
  Transmission Date: 20240716
  Serious: Yes (Other)
  Sender: FDA-Public Use
  Company Number: US-ABBVIE-5729034

PATIENT
  Age: 52 Year
  Sex: Male

DRUGS (1)
  1. RINVOQ [Suspect]
     Active Substance: UPADACITINIB
     Indication: Alopecia universalis
     Route: 048
     Dates: start: 202306, end: 202404

REACTIONS (2)
  - Cartilage operation [Unknown]
  - Off label use [Unknown]

NARRATIVE: CASE EVENT DATE: 20230601
